FAERS Safety Report 12897669 (Version 11)
Quarter: 2021Q1

REPORT INFORMATION
  Report Type: Other
  Country: CA (occurrence: CA)
  Receive Date: 20161031
  Receipt Date: 20210218
  Transmission Date: 20210419
  Serious: Yes (Life-Threatening, Other)
  Sender: FDA-Public Use
  Company Number: CA-ASTELLAS-2016US041772

PATIENT
  Age: 45 Year
  Sex: Female

DRUGS (105)
  1. PROGRAF [Suspect]
     Active Substance: TACROLIMUS
     Dosage: UNK UNK, UNKNOWN FREQ.
     Route: 048
  2. PROGRAF [Suspect]
     Active Substance: TACROLIMUS
     Route: 048
  3. PROGRAF [Suspect]
     Active Substance: TACROLIMUS
     Route: 048
  4. PROGRAF [Suspect]
     Active Substance: TACROLIMUS
     Indication: TRANSPLANT
     Route: 048
  5. PROGRAF [Suspect]
     Active Substance: TACROLIMUS
     Dosage: UNK, UNKNOWN FREQ.
     Route: 065
  6. PROGRAF [Suspect]
     Active Substance: TACROLIMUS
     Dosage: UNK, UNKNOWN FREQ.
     Route: 048
  7. TACROLIMUS. [Suspect]
     Active Substance: TACROLIMUS
     Route: 048
  8. ANTITHYMOCYTE IMMUNOGLOBULIN (RABBIT) [Suspect]
     Active Substance: LAPINE T-LYMPHOCYTE IMMUNE GLOBULIN
     Dosage: UNK, UNKNOWN FREQ.
     Route: 065
  9. DACLIZUMAB [Suspect]
     Active Substance: DACLIZUMAB
     Indication: TRANSPLANT
     Dosage: UNK MG, UNKNOWN FREQ.
     Route: 042
  10. ENBREL [Suspect]
     Active Substance: ETANERCEPT
     Route: 065
  11. MYCOPHENOLATE MOFETIL. [Suspect]
     Active Substance: MYCOPHENOLATE MOFETIL
     Route: 065
  12. NEORAL [Suspect]
     Active Substance: CYCLOSPORINE
     Indication: TRANSPLANT
     Dosage: UNK, UNKNOWN FREQ.
     Route: 065
  13. NEORAL [Suspect]
     Active Substance: CYCLOSPORINE
     Dosage: UNK, UNKNOWN FREQ.
     Route: 065
  14. CELLCEPT [Suspect]
     Active Substance: MYCOPHENOLATE MOFETIL\MYCOPHENOLATE MOFETIL HYDROCHLORIDE
     Dosage: UNK, UNKNOWN FREQ.
     Route: 065
  15. ANTILYMPHOCYTE IMMUNOGLOBULIN [Suspect]
     Active Substance: THYMOCYTE IMMUNE GLOBULIN NOS
     Indication: TRANSPLANT REJECTION
     Route: 065
  16. MYCOPHENOLATE MOFETIL. [Suspect]
     Active Substance: MYCOPHENOLATE MOFETIL
     Indication: TRANSPLANT
     Route: 048
  17. PROGRAF [Suspect]
     Active Substance: TACROLIMUS
     Route: 048
  18. PROGRAF [Suspect]
     Active Substance: TACROLIMUS
     Route: 048
  19. TACROLIMUS. [Suspect]
     Active Substance: TACROLIMUS
     Indication: PRODUCT USED FOR UNKNOWN INDICATION
     Route: 048
  20. TACROLIMUS. [Suspect]
     Active Substance: TACROLIMUS
     Route: 048
  21. ENBREL [Suspect]
     Active Substance: ETANERCEPT
     Route: 048
  22. ENBREL [Suspect]
     Active Substance: ETANERCEPT
     Route: 048
  23. ENBREL [Suspect]
     Active Substance: ETANERCEPT
     Route: 065
  24. ENBREL [Suspect]
     Active Substance: ETANERCEPT
     Route: 048
  25. CELLCEPT [Suspect]
     Active Substance: MYCOPHENOLATE MOFETIL\MYCOPHENOLATE MOFETIL HYDROCHLORIDE
     Indication: TRANSPLANT
     Route: 048
  26. CELLCEPT [Suspect]
     Active Substance: MYCOPHENOLATE MOFETIL\MYCOPHENOLATE MOFETIL HYDROCHLORIDE
     Route: 065
  27. PROGRAF [Suspect]
     Active Substance: TACROLIMUS
     Dosage: 6 MG, OTHER (EVERY1 HOUR)
     Route: 048
  28. PROGRAF [Suspect]
     Active Substance: TACROLIMUS
     Route: 048
  29. PROGRAF [Suspect]
     Active Substance: TACROLIMUS
     Route: 048
  30. PROGRAF [Suspect]
     Active Substance: TACROLIMUS
     Route: 048
  31. PROGRAF [Suspect]
     Active Substance: TACROLIMUS
     Route: 048
  32. PROGRAF [Suspect]
     Active Substance: TACROLIMUS
     Route: 048
  33. DACLIZUMAB [Suspect]
     Active Substance: DACLIZUMAB
     Route: 042
  34. ENBREL [Suspect]
     Active Substance: ETANERCEPT
     Route: 058
  35. ENBREL [Suspect]
     Active Substance: ETANERCEPT
     Route: 058
  36. ENBREL [Suspect]
     Active Substance: ETANERCEPT
     Route: 058
  37. ENBREL [Suspect]
     Active Substance: ETANERCEPT
     Route: 058
  38. ENBREL [Suspect]
     Active Substance: ETANERCEPT
     Route: 065
  39. ENBREL [Suspect]
     Active Substance: ETANERCEPT
     Route: 058
  40. MYCOPHENOLATE MOFETIL. [Suspect]
     Active Substance: MYCOPHENOLATE MOFETIL
     Dosage: UNK, UNKNOWN FREQ.
     Route: 065
  41. REMICADE [Suspect]
     Active Substance: INFLIXIMAB
     Indication: PRODUCT USED FOR UNKNOWN INDICATION
     Dosage: UNK, UNKNOWN FREQ.
     Route: 042
  42. CELLCEPT [Suspect]
     Active Substance: MYCOPHENOLATE MOFETIL\MYCOPHENOLATE MOFETIL HYDROCHLORIDE
     Route: 065
  43. ZENAPAX [Suspect]
     Active Substance: DACLIZUMAB
     Indication: PRODUCT USED FOR UNKNOWN INDICATION
     Route: 042
  44. ZENAPAX [Suspect]
     Active Substance: DACLIZUMAB
     Dosage: UNK, UNKNOWN FREQ.
     Route: 042
  45. PROGRAF [Suspect]
     Active Substance: TACROLIMUS
     Route: 048
  46. PROGRAF [Suspect]
     Active Substance: TACROLIMUS
     Route: 048
  47. PROGRAF [Suspect]
     Active Substance: TACROLIMUS
     Dosage: UNK UNK, UNKNOWN FREQ.
     Route: 048
  48. PROGRAF [Suspect]
     Active Substance: TACROLIMUS
     Route: 048
  49. PROGRAF [Suspect]
     Active Substance: TACROLIMUS
     Route: 048
  50. PROGRAF [Suspect]
     Active Substance: TACROLIMUS
     Route: 048
  51. TACROLIMUS. [Suspect]
     Active Substance: TACROLIMUS
     Route: 065
  52. TACROLIMUS. [Suspect]
     Active Substance: TACROLIMUS
     Route: 048
  53. ANTITHYMOCYTE IMMUNOGLOBULIN (RABBIT) [Suspect]
     Active Substance: LAPINE T-LYMPHOCYTE IMMUNE GLOBULIN
     Route: 065
  54. ANTITHYMOCYTE IMMUNOGLOBULIN (RABBIT) [Suspect]
     Active Substance: LAPINE T-LYMPHOCYTE IMMUNE GLOBULIN
     Route: 065
  55. ANTITHYMOCYTE IMMUNOGLOBULIN (RABBIT) [Suspect]
     Active Substance: LAPINE T-LYMPHOCYTE IMMUNE GLOBULIN
     Route: 065
  56. DACLIZUMAB [Suspect]
     Active Substance: DACLIZUMAB
     Dosage: UNK UNK, UNKNOWN FREQ.
     Route: 042
  57. ENBREL [Suspect]
     Active Substance: ETANERCEPT
     Indication: PRODUCT USED FOR UNKNOWN INDICATION
     Route: 065
  58. MYCOPHENOLATE MOFETIL. [Suspect]
     Active Substance: MYCOPHENOLATE MOFETIL
     Indication: TRANSPLANT
     Dosage: 2000 MG, ONCE DAILY (2 DF IN ONE DAY)
     Route: 048
  59. MYCOPHENOLATE MOFETIL. [Suspect]
     Active Substance: MYCOPHENOLATE MOFETIL
     Route: 048
  60. SULFASALAZINE. [Suspect]
     Active Substance: SULFASALAZINE
     Indication: RHEUMATOID ARTHRITIS
     Dosage: UNK UNK, UNKNOWN FREQ.
     Route: 065
  61. CELLCEPT [Suspect]
     Active Substance: MYCOPHENOLATE MOFETIL\MYCOPHENOLATE MOFETIL HYDROCHLORIDE
     Indication: PRODUCT USED FOR UNKNOWN INDICATION
     Route: 065
  62. ZENAPAX [Suspect]
     Active Substance: DACLIZUMAB
     Dosage: UNK, UNKNOWN FREQ.
     Route: 065
  63. ANTILYMPHOCYTE GLOBULIN [Suspect]
     Active Substance: THYMOCYTE IMMUNE GLOBULIN NOS
     Indication: PRODUCT USED FOR UNKNOWN INDICATION
     Route: 065
  64. ANTILYMPHOCYTE IMMUNOGLOBULIN [Suspect]
     Active Substance: THYMOCYTE IMMUNE GLOBULIN NOS
     Route: 065
  65. GLICLAZIDE [Suspect]
     Active Substance: GLICLAZIDE
     Indication: PRODUCT USED FOR UNKNOWN INDICATION
     Dosage: UNK UNK, UNKNOWN FREQ.
     Route: 042
  66. PROGRAF [Suspect]
     Active Substance: TACROLIMUS
     Indication: TRANSPLANT
     Route: 048
  67. PROGRAF [Suspect]
     Active Substance: TACROLIMUS
     Dosage: 4 MG, OTHER (EVERY 1 HOUR)
     Route: 048
  68. PROGRAF [Suspect]
     Active Substance: TACROLIMUS
     Route: 048
  69. PROGRAF [Suspect]
     Active Substance: TACROLIMUS
     Route: 048
  70. PROGRAF [Suspect]
     Active Substance: TACROLIMUS
     Route: 048
  71. DACLIZUMAB [Suspect]
     Active Substance: DACLIZUMAB
     Dosage: UNK UNK, UNKNOWN FREQ.
     Route: 042
  72. ENBREL [Suspect]
     Active Substance: ETANERCEPT
     Route: 058
  73. ENBREL [Suspect]
     Active Substance: ETANERCEPT
     Route: 058
  74. ENBREL [Suspect]
     Active Substance: ETANERCEPT
     Route: 065
  75. RAPAMUNE [Suspect]
     Active Substance: SIROLIMUS
     Indication: TRANSPLANT
     Dosage: UNK, UNKNOWN FREQ.
     Route: 065
  76. CELLCEPT [Suspect]
     Active Substance: MYCOPHENOLATE MOFETIL\MYCOPHENOLATE MOFETIL HYDROCHLORIDE
     Route: 065
  77. CELLCEPT [Suspect]
     Active Substance: MYCOPHENOLATE MOFETIL\MYCOPHENOLATE MOFETIL HYDROCHLORIDE
     Route: 048
  78. PROGRAF [Suspect]
     Active Substance: TACROLIMUS
     Route: 048
  79. PROGRAF [Suspect]
     Active Substance: TACROLIMUS
     Route: 048
  80. TACROLIMUS. [Suspect]
     Active Substance: TACROLIMUS
     Route: 048
  81. ANTITHYMOCYTE IMMUNOGLOBULIN (RABBIT) [Suspect]
     Active Substance: LAPINE T-LYMPHOCYTE IMMUNE GLOBULIN
     Route: 058
  82. ENBREL [Suspect]
     Active Substance: ETANERCEPT
     Route: 065
  83. ENBREL [Suspect]
     Active Substance: ETANERCEPT
     Route: 058
  84. ENBREL [Suspect]
     Active Substance: ETANERCEPT
     Route: 058
  85. ENBREL [Suspect]
     Active Substance: ETANERCEPT
     Route: 058
  86. ENBREL [Suspect]
     Active Substance: ETANERCEPT
     Route: 065
  87. REMICADE [Suspect]
     Active Substance: INFLIXIMAB
     Indication: PRODUCT USED FOR UNKNOWN INDICATION
     Dosage: UNK, UNKNOWN FREQ.
     Route: 042
  88. PROGRAF [Suspect]
     Active Substance: TACROLIMUS
     Dosage: 2000 MG, OTHER (EVERY HOUR)
     Route: 048
  89. PROGRAF [Suspect]
     Active Substance: TACROLIMUS
     Dosage: UNK UNK, UNKNOWN FREQ.
     Route: 048
  90. PROGRAF [Suspect]
     Active Substance: TACROLIMUS
     Route: 048
  91. ANTITHYMOCYTE IMMUNOGLOBULIN (RABBIT) [Suspect]
     Active Substance: LAPINE T-LYMPHOCYTE IMMUNE GLOBULIN
     Indication: TRANSPLANT
     Route: 065
  92. MYCOPHENOLATE MOFETIL. [Suspect]
     Active Substance: MYCOPHENOLATE MOFETIL
     Route: 048
  93. PROGRAF [Suspect]
     Active Substance: TACROLIMUS
     Route: 048
  94. PROGRAF [Suspect]
     Active Substance: TACROLIMUS
     Route: 048
  95. PROGRAF [Suspect]
     Active Substance: TACROLIMUS
     Route: 048
  96. PROGRAF [Suspect]
     Active Substance: TACROLIMUS
     Route: 048
  97. PROGRAF [Suspect]
     Active Substance: TACROLIMUS
     Route: 065
  98. PROGRAF [Suspect]
     Active Substance: TACROLIMUS
     Route: 048
  99. TACROLIMUS. [Suspect]
     Active Substance: TACROLIMUS
     Route: 048
  100. DACLIZUMAB [Suspect]
     Active Substance: DACLIZUMAB
     Dosage: UNK UNK, UNKNOWN FREQ.
     Route: 042
  101. ENBREL [Suspect]
     Active Substance: ETANERCEPT
     Route: 058
  102. ENBREL [Suspect]
     Active Substance: ETANERCEPT
     Route: 048
  103. MYCOPHENOLATE MOFETIL. [Suspect]
     Active Substance: MYCOPHENOLATE MOFETIL
     Route: 048
  104. ANTILYMPHOCYTE IMMUNOGLOBULIN [Suspect]
     Active Substance: THYMOCYTE IMMUNE GLOBULIN NOS
     Route: 065
  105. TEMAZEPAM. [Suspect]
     Active Substance: TEMAZEPAM
     Indication: PRODUCT USED FOR UNKNOWN INDICATION
     Dosage: UNK UNK, UNKNOWN FREQ.
     Route: 042

REACTIONS (16)
  - Alopecia [Not Recovered/Not Resolved]
  - Transplant dysfunction [Not Recovered/Not Resolved]
  - Pneumonia [Not Recovered/Not Resolved]
  - Condition aggravated [Not Recovered/Not Resolved]
  - Sleep disorder due to general medical condition, insomnia type [Not Recovered/Not Resolved]
  - Pain [Not Recovered/Not Resolved]
  - Acne [Not Recovered/Not Resolved]
  - Incorrect route of product administration [Not Recovered/Not Resolved]
  - Drug ineffective [Not Recovered/Not Resolved]
  - Transplant rejection [Not Recovered/Not Resolved]
  - Liver function test abnormal [Not Recovered/Not Resolved]
  - Overdose [Unknown]
  - Rheumatoid arthritis [Not Recovered/Not Resolved]
  - Ovarian cyst [Not Recovered/Not Resolved]
  - Loss of personal independence in daily activities [Not Recovered/Not Resolved]
  - Product use issue [Unknown]
